FAERS Safety Report 11275735 (Version 1)
Quarter: 2015Q3

REPORT INFORMATION
  Report Type: Spontaneous
  Country: US (occurrence: None)
  Receive Date: 20150715
  Receipt Date: 20150715
  Transmission Date: 20151125
  Serious: No
  Sender: FDA-Public Use
  Company Number: None

PATIENT

DRUGS (2)
  1. ROBITUSSIN (GUAIFENESIN) [Suspect]
     Active Substance: GUAIFENESIN
  2. ATIVAN [Suspect]
     Active Substance: LORAZEPAM

REACTIONS (3)
  - Transcription medication error [None]
  - Intercepted drug administration error [None]
  - Drug dispensing error [None]
